FAERS Safety Report 17505370 (Version 2)
Quarter: 2020Q1

REPORT INFORMATION
  Report Type: Spontaneous
  Country: US (occurrence: US)
  Receive Date: 20200305
  Receipt Date: 20200326
  Transmission Date: 20200409
  Serious: Yes (Other)
  Sender: FDA-Public Use
  Company Number: NVSC2020US057687

PATIENT
  Age: 94 Year
  Sex: Female

DRUGS (3)
  1. BEOVU [Suspect]
     Active Substance: BROLUCIZUMAB-DBLL
     Indication: NEOVASCULAR AGE-RELATED MACULAR DEGENERATION
     Dosage: 6 MG/KG, QMO
     Route: 031
  2. BEOVU [Suspect]
     Active Substance: BROLUCIZUMAB-DBLL
     Dosage: 6 MG/KG, QMO
     Route: 047
  3. BEOVU [Suspect]
     Active Substance: BROLUCIZUMAB-DBLL
     Dosage: 0.05 ML
     Route: 065
     Dates: start: 20191220, end: 20200121

REACTIONS (4)
  - Visual impairment [Recovering/Resolving]
  - Eye inflammation [Unknown]
  - Vision blurred [Unknown]
  - Vitritis [Recovering/Resolving]

NARRATIVE: CASE EVENT DATE: 20200125
